FAERS Safety Report 6221900-6 (Version None)
Quarter: 2009Q2

REPORT INFORMATION
  Report Type: 
  Country: None (occurrence: None)
  Receive Date: 20090608
  Receipt Date: 20090608
  Transmission Date: 20091009
  Serious: Yes (Other)
  Sender: FDA-Public Use
  Company Number: None

PATIENT
  Age: 70 Year
  Sex: Male
  Weight: 138.8007 kg

DRUGS (1)
  1. WARFARIN SODIUM [Suspect]
     Indication: VENOUS THROMBOSIS
     Dosage: 5MG ONE QD
     Dates: start: 20090409

REACTIONS (1)
  - RASH [None]
